FAERS Safety Report 13020292 (Version 2)
Quarter: 2016Q4

REPORT INFORMATION
  Report Type: Spontaneous
  Country: JP (occurrence: JP)
  Receive Date: 20161212
  Receipt Date: 20161220
  Transmission Date: 20170207
  Serious: Yes (Other)
  Sender: FDA-Public Use
  Company Number: PHHY2016JP169712

PATIENT
  Sex: Male

DRUGS (6)
  1. EVEROLIMUS [Suspect]
     Active Substance: EVEROLIMUS
     Indication: POSTERIOR REVERSIBLE ENCEPHALOPATHY SYNDROME
  2. CICLOSPORIN [Suspect]
     Active Substance: CYCLOSPORINE
     Indication: LIVER TRANSPLANT
     Dosage: UNK
     Route: 065
  3. CICLOSPORIN [Suspect]
     Active Substance: CYCLOSPORINE
     Indication: POSTERIOR REVERSIBLE ENCEPHALOPATHY SYNDROME
  4. EVEROLIMUS [Suspect]
     Active Substance: EVEROLIMUS
     Indication: IMMUNOSUPPRESSANT DRUG THERAPY
  5. CICLOSPORIN [Suspect]
     Active Substance: CYCLOSPORINE
     Indication: IMMUNOSUPPRESSANT DRUG THERAPY
  6. EVEROLIMUS [Suspect]
     Active Substance: EVEROLIMUS
     Indication: LIVER TRANSPLANT
     Dosage: UNK
     Route: 065

REACTIONS (5)
  - Hemiplegia [Unknown]
  - Seizure [Unknown]
  - Altered state of consciousness [Unknown]
  - Treatment failure [Unknown]
  - Product use issue [Unknown]
